FAERS Safety Report 18378742 (Version 1)
Quarter: 2020Q4

REPORT INFORMATION
  Report Type: Spontaneous
  Country: PT (occurrence: PT)
  Receive Date: 20201013
  Receipt Date: 20201013
  Transmission Date: 20210114
  Serious: Yes (Other)
  Sender: FDA-Public Use
  Company Number: PT-JNJFOC-20201005902

PATIENT
  Age: 27 Year
  Sex: Male

DRUGS (11)
  1. DIAZEPAM. [Suspect]
     Active Substance: DIAZEPAM
     Indication: BEHAVIOUR DISORDER
     Dosage: 10 MG
     Route: 030
  2. LEVOMEPROMAZINE [Suspect]
     Active Substance: LEVOMEPROMAZINE
     Indication: BEHAVIOUR DISORDER
     Dosage: 25 MG, 3X PER DAY
  3. HALDOL [Suspect]
     Active Substance: HALOPERIDOL
     Indication: BEHAVIOUR DISORDER
     Dosage: 10 MG
     Route: 030
  4. RISPERIDONE. [Suspect]
     Active Substance: RISPERIDONE
     Indication: AGITATION
  5. RISPERIDONE. [Suspect]
     Active Substance: RISPERIDONE
     Indication: BEHAVIOUR DISORDER
     Dosage: 4 MG, QD
     Route: 048
  6. BIPERIDEN [Suspect]
     Active Substance: BIPERIDEN
     Indication: BEHAVIOUR DISORDER
     Dosage: 4 MG, QD
     Route: 065
  7. LORAZEPAM. [Suspect]
     Active Substance: LORAZEPAM
     Indication: BEHAVIOUR DISORDER
     Dosage: 10 MG, QD
     Route: 048
  8. LORAZEPAM. [Suspect]
     Active Substance: LORAZEPAM
     Indication: AGITATION
  9. LEVOMEPROMAZINE [Suspect]
     Active Substance: LEVOMEPROMAZINE
     Indication: AGITATION
     Dosage: UNK
  10. CHLORPROMAZINE. [Suspect]
     Active Substance: CHLORPROMAZINE
     Indication: BEHAVIOUR DISORDER
     Dosage: 50 MG
     Route: 065
  11. LEVOMEPROMAZINE [Suspect]
     Active Substance: LEVOMEPROMAZINE
     Indication: NEUROPSYCHIATRIC SYMPTOMS
     Dosage: 300MG

REACTIONS (4)
  - Therapeutic product cross-reactivity [Unknown]
  - Drug ineffective [Unknown]
  - Drug screen false positive [Recovered/Resolved]
  - Drug abuse [Unknown]
